FAERS Safety Report 8917515 (Version 1)
Quarter: 2012Q4

REPORT INFORMATION
  Report Type: 
  Country: US (occurrence: US)
  Receive Date: 20121120
  Receipt Date: 20121120
  Transmission Date: 20130627
  Serious: Yes (Hospitalization)
  Sender: FDA-Public Use
  Company Number: US-BAYER-2012-119871

PATIENT
  Age: 25 Year
  Sex: Female
  Weight: 117.91 kg

DRUGS (13)
  1. YAZ [Suspect]
  2. BEYAZ [Suspect]
  3. SAFYRAL [Suspect]
  4. MOTRIN [Concomitant]
     Dosage: UNK
     Dates: start: 20120628
  5. BUPROPION HYDROCHLORIDE [Concomitant]
  6. AZITHROMYCIN [Concomitant]
  7. LOESTRIN [Concomitant]
  8. VIVELLE-DOT [Concomitant]
  9. WELLBUTRIN [Concomitant]
  10. ATENOLOL [Concomitant]
     Dosage: 50 mg,daily
  11. METFORMIN [Concomitant]
     Indication: DIABETES MELLITUS
  12. FERGON [Concomitant]
  13. IBUPROFEN [Concomitant]

REACTIONS (1)
  - Pulmonary embolism [None]
